FAERS Safety Report 19975302 (Version 3)
Quarter: 2022Q2

REPORT INFORMATION
  Report Type: Spontaneous
  Country: US (occurrence: US)
  Receive Date: 20211020
  Receipt Date: 20220418
  Transmission Date: 20220721
  Serious: Yes (Other)
  Sender: FDA-Public Use
  Company Number: US-PFIZER INC-202101353847

PATIENT
  Age: 53 Year
  Sex: Female

DRUGS (1)
  1. XELJANZ XR [Suspect]
     Active Substance: TOFACITINIB CITRATE
     Indication: Psoriatic arthropathy
     Dosage: 11 MG, 1X/DAY
     Route: 048
     Dates: start: 20210904, end: 202202

REACTIONS (10)
  - Haematochezia [Unknown]
  - Intentional product misuse [Unknown]
  - Discouragement [Unknown]
  - Depressed mood [Unknown]
  - Abdominal pain lower [Unknown]
  - Food poisoning [Unknown]
  - Gastroenteritis [Unknown]
  - Suspected COVID-19 [Unknown]
  - Hypokinesia [Unknown]
  - Exposure to SARS-CoV-2 [Unknown]

NARRATIVE: CASE EVENT DATE: 20210901
